FAERS Safety Report 10931725 (Version 1)
Quarter: 2015Q1

REPORT INFORMATION
  Report Type: Spontaneous
  Country: AU (occurrence: AU)
  Receive Date: 20150319
  Receipt Date: 20150319
  Transmission Date: 20150721
  Serious: Yes (Death, Hospitalization)
  Sender: FDA-Public Use
  Company Number: PHHY2015AU030253

PATIENT
  Age: 39 Year
  Sex: Male

DRUGS (2)
  1. AZATHIOPRINE. [Suspect]
     Active Substance: AZATHIOPRINE
     Indication: CROHN^S DISEASE
     Route: 065
  2. PREDNISONE. [Suspect]
     Active Substance: PREDNISONE
     Indication: CROHN^S DISEASE
     Route: 065

REACTIONS (8)
  - Neutropenia [Fatal]
  - Lung infiltration [Fatal]
  - Lymphocytic infiltration [Fatal]
  - Hepatosplenic T-cell lymphoma [Fatal]
  - Hepatosplenomegaly [Fatal]
  - Neutropenic sepsis [Fatal]
  - Splenic infarction [Fatal]
  - Splenomegaly [Fatal]
